FAERS Safety Report 7305086-2 (Version None)
Quarter: 2011Q1

REPORT INFORMATION
  Report Type: 
  Country: None (occurrence: None)
  Receive Date: 20110222
  Receipt Date: 20110214
  Transmission Date: 20110831
  Serious: Yes (Death, Hospitalization, Other)
  Sender: FDA-Public Use
  Company Number: BR-SANOFI-AVENTIS-2011SA009883

PATIENT
  Sex: Male
  Weight: 120 kg

DRUGS (11)
  1. ALISKIREN [Suspect]
  2. VALSARTAN [Suspect]
  3. THIOCTACID [Suspect]
     Route: 048
  4. HYDRALAZINE [Suspect]
  5. OMEPRAZOLE [Concomitant]
     Indication: GASTRIC DISORDER
     Route: 048
     Dates: end: 20101221
  6. AUTOPEN 24 [Concomitant]
     Dates: end: 20101221
  7. LANTUS [Suspect]
     Indication: TYPE 2 DIABETES MELLITUS
     Route: 058
  8. NPH INSULIN [Concomitant]
  9. PENTOXIFYLLINE [Concomitant]
     Indication: FINGER AMPUTATION
  10. BENICAR [Suspect]
     Route: 048
     Dates: start: 20100101
  11. HUMULIN R [Concomitant]

REACTIONS (8)
  - MULTI-ORGAN FAILURE [None]
  - LUNG DISORDER [None]
  - PANIC ATTACK [None]
  - COMA [None]
  - RHINITIS [None]
  - INSOMNIA [None]
  - COUGH [None]
  - DYSPNOEA [None]
